FAERS Safety Report 23976688 (Version 1)
Quarter: 2024Q2

REPORT INFORMATION
  Report Type: Spontaneous
  Country: GB (occurrence: GB)
  Receive Date: 20240614
  Receipt Date: 20240614
  Transmission Date: 20240716
  Serious: Yes (Hospitalization)
  Sender: FDA-Public Use
  Company Number: GB-MHRA-TPP5225353C22632790YC1716989506108

PATIENT
  Age: 78 Year
  Sex: Male
  Weight: 79 kg

DRUGS (22)
  1. MORPHINE [Suspect]
     Active Substance: MORPHINE
     Indication: Ill-defined disorder
     Dosage: MORPHINE INJECTION 8.4MG/ML
     Route: 065
  2. COCODAMOL [Concomitant]
     Active Substance: ACETAMINOPHEN\CODEINE PHOSPHATE
     Indication: Ill-defined disorder
     Dosage: ONE OR TWO TO BE TAKEN FOUR TIMES A DAY WHEN RE...
     Route: 065
     Dates: start: 20240312, end: 20240410
  3. POLYETHYLENE GLYCOL 3350\POTASSIUM CHLORIDE\SODIUM BICARBONATE\SODIUM [Concomitant]
     Active Substance: POLYETHYLENE GLYCOL 3350\POTASSIUM CHLORIDE\SODIUM BICARBONATE\SODIUM CHLORIDE
     Indication: Ill-defined disorder
     Dosage: 1 DOSAGE FORM, BID, ONE TO BE TAKEN TWO TIMES A DAY, ORANGE
     Route: 065
     Dates: start: 20240312, end: 20240424
  4. CODEINE [Concomitant]
     Active Substance: CODEINE
     Indication: Ill-defined disorder
     Dosage: TAKE ONE OR TWO TABLETS UP TO FOUR TIMES DAILY ...
     Route: 065
     Dates: start: 20240319, end: 20240417
  5. LACTULOSE [Concomitant]
     Active Substance: LACTULOSE
     Indication: Ill-defined disorder
     Dosage: 3 DOSAGE FORM, BID
     Route: 065
     Dates: start: 20240319, end: 20240417
  6. PROCHLORPERAZINE [Concomitant]
     Active Substance: PROCHLORPERAZINE
     Indication: Ill-defined disorder
     Dosage: 1 DOSAGE FORM, TID, ONE TABLET TO BE TAKEN THREE TIMES ADAY
     Route: 065
     Dates: start: 20240409
  7. CYCLIZINE [Concomitant]
     Active Substance: CYCLIZINE
     Indication: Ill-defined disorder
     Dosage: 1 DOSAGE FORM, PRN, TAKE ONE TABLET THREE TIMES A DAY WHEN REQUIRED
     Route: 065
     Dates: start: 20240522
  8. SENNOSIDES [Concomitant]
     Active Substance: SENNOSIDES
     Indication: Ill-defined disorder
     Dosage: TAKE ONE OR TWO 5ML SPOONFULS AT NIGHT WHEN NEE...
     Route: 065
     Dates: start: 20240528
  9. METFORMIN [Concomitant]
     Active Substance: METFORMIN HYDROCHLORIDE
     Indication: Ill-defined disorder
     Dosage: 2 DOSAGE FORM, BID
     Route: 065
     Dates: start: 20000314, end: 20240528
  10. ATORVASTATIN [Concomitant]
     Active Substance: ATORVASTATIN
     Indication: Ill-defined disorder
     Dosage: 1 DOSAGE FORM, DAILY
     Route: 065
     Dates: start: 20030624, end: 20240523
  11. ACETAMINOPHEN [Concomitant]
     Active Substance: ACETAMINOPHEN
     Indication: Ill-defined disorder
     Dosage: 2 DOSAGE FORM, PRN, UP TO FOUR TIMES A DAY AS REQUIRED
     Route: 065
     Dates: start: 20060612
  12. FERROUS FUMARATE [Concomitant]
     Active Substance: FERROUS FUMARATE
     Indication: Ill-defined disorder
     Dosage: 1 DOSAGE FORM, BID
     Route: 065
     Dates: start: 20141114, end: 20240523
  13. BLINK INTENSIVE TEARS [Concomitant]
     Indication: Ill-defined disorder
     Dosage: APPLY AS REQUIRED
     Route: 065
     Dates: start: 20180119
  14. GLIMEPIRIDE [Concomitant]
     Active Substance: GLIMEPIRIDE
     Indication: Ill-defined disorder
     Dosage: 2 DOSAGE FORM, DAILY
     Route: 065
     Dates: start: 20180717, end: 20240528
  15. LISINOPRIL [Concomitant]
     Active Substance: LISINOPRIL
     Indication: Ill-defined disorder
     Dosage: 1 DOSAGE FORM, DAILY
     Route: 065
     Dates: start: 20180717, end: 20240528
  16. ASPIRIN [Concomitant]
     Active Substance: ASPIRIN
     Indication: Ill-defined disorder
     Dosage: 1 DOSAGE FORM, DAILY
     Route: 065
     Dates: start: 20220523
  17. BECLOMETHASONE\FORMOTEROL [Concomitant]
     Active Substance: BECLOMETHASONE\FORMOTEROL
     Indication: Ill-defined disorder
     Dosage: TWO PUFFS TWICE A DAY PLUS EXTRA PUFFS AS NEEDE...
     Route: 065
     Dates: start: 20220617
  18. DOCUSATE [Concomitant]
     Active Substance: DOCUSATE
     Indication: Constipation
     Dosage: TAKE ONE DAILY WHEN REQUIRED FOR CONSTIPATION
     Route: 065
     Dates: start: 20240528
  19. METOCLOPRAMIDE [Concomitant]
     Active Substance: METOCLOPRAMIDE
     Indication: Ill-defined disorder
     Dosage: TAKE ONE THREE TIMES A DAY WHEN REQUIRED - TABL...
     Route: 065
     Dates: start: 20240528
  20. OXYCODONE [Concomitant]
     Active Substance: OXYCODONE\OXYCODONE HYDROCHLORIDE
     Indication: Ill-defined disorder
     Dosage: 2.5 MILLILITER, PRN, TAKE 2.5ML TO BE TAKEN FOUR TIMES DAILY WHEN RE...
     Route: 065
     Dates: start: 20240528
  21. OXYCODONE HYDROCHLORIDE [Concomitant]
     Active Substance: OXYCODONE HYDROCHLORIDE
     Indication: Ill-defined disorder
     Dosage: 1 DOSAGE FORM, BID, TAKE ONE EVERY 12 HRS
     Route: 065
     Dates: start: 20240528
  22. SENNA [Concomitant]
     Active Substance: SENNA LEAF\SENNOSIDES\SENNOSIDES A AND B
     Indication: Constipation
     Dosage: TAKE 1 OR 2 AT NIGHT AS NEEDED FOR CONSTIPATION
     Route: 065
     Dates: start: 20240528, end: 20240528

REACTIONS (1)
  - Rash erythematous [Unknown]

NARRATIVE: CASE EVENT DATE: 20240529
